FAERS Safety Report 18696733 (Version 1)
Quarter: 2021Q1

REPORT INFORMATION
  Report Type: Spontaneous
  Country: CA (occurrence: CA)
  Receive Date: 20210104
  Receipt Date: 20210104
  Transmission Date: 20210419
  Serious: Yes (Hospitalization)
  Sender: FDA-Public Use
  Company Number: CA-PFIZER INC-2020518118

PATIENT
  Age: 3 Year
  Sex: Male
  Weight: 15 kg

DRUGS (6)
  1. GLYBURIDE. [Suspect]
     Active Substance: GLYBURIDE
     Dosage: 30 MG, ONCE
     Route: 048
  2. CANDESARTAN CILEXETIL AND HYDROCHLOROTHIAZIDE [Suspect]
     Active Substance: CANDESARTAN CILEXETIL\HYDROCHLOROTHIAZIDE
     Dosage: 6 DF, ONCE
  3. INVOKANA [Suspect]
     Active Substance: CANAGLIFLOZIN
     Dosage: 500 MG, ONCE
     Route: 048
  4. ACETAMINOPHEN. [Concomitant]
     Active Substance: ACETAMINOPHEN
  5. AMLODIPINE BESILATE [Suspect]
     Active Substance: AMLODIPINE BESYLATE
     Dosage: 10 MG, ONCE
     Route: 048
  6. JANUMET [Suspect]
     Active Substance: METFORMIN HYDROCHLORIDE\SITAGLIPTIN PHOSPHATE
     Dosage: 8 DF, ONCE
     Route: 048

REACTIONS (3)
  - Blood glucose decreased [Recovered/Resolved]
  - Toxicity to various agents [Recovered/Resolved]
  - Accidental exposure to product by child [Recovered/Resolved]
